FAERS Safety Report 6347507-8 (Version None)
Quarter: 2009Q3

REPORT INFORMATION
  Report Type: 
  Country: None (occurrence: None)
  Receive Date: 20090908
  Receipt Date: 20090908
  Transmission Date: 20100115
  Serious: No
  Sender: FDA-Public Use
  Company Number: None

PATIENT
  Age: 40 Year
  Sex: Female
  Weight: 72.5755 kg

DRUGS (2)
  1. RENATE DHA PRENATEL 430MG RIVER'S EDGE PHARMACEUTICALS [Suspect]
     Indication: PREGNANCY
     Dosage: ONE CAPLET DAILY PO
     Route: 048
     Dates: start: 20090902, end: 20090902
  2. RENATE DHA DECOSAHEXAENIC 430MG RIVER'S EDGE PHARMACEUTICALS [Suspect]
     Dosage: ONCE CAPLET DAILY PO
     Route: 048

REACTIONS (4)
  - DRY SKIN [None]
  - HYPERSENSITIVITY [None]
  - REACTION TO DRUG EXCIPIENTS [None]
  - SKIN DISCOLOURATION [None]
